FAERS Safety Report 12784204 (Version 5)
Quarter: 2019Q1

REPORT INFORMATION
  Report Type: Report from Study
  Country: DE (occurrence: DE)
  Receive Date: 20160927
  Receipt Date: 20190207
  Transmission Date: 20190417
  Serious: Yes (Other)
  Sender: FDA-Public Use
  Company Number: DE-INCYTE CORPORATION-2012IN002776

PATIENT

DRUGS (39)
  1. INCB018424 [Suspect]
     Active Substance: RUXOLITINIB
     Dosage: UNK UNK, QD
     Route: 048
     Dates: start: 20140214, end: 20140307
  2. INCB018424 [Suspect]
     Active Substance: RUXOLITINIB
     Dosage: UNK UNK, QD
     Route: 048
     Dates: start: 20140405, end: 20140423
  3. TORASEMIDE [Concomitant]
     Active Substance: TORSEMIDE
     Dosage: 10 MG, UNK
     Route: 065
     Dates: start: 20131009
  4. LORAZEPAM. [Concomitant]
     Active Substance: LORAZEPAM
     Indication: RESTLESSNESS
     Dosage: 2 MG, QD
     Route: 065
     Dates: start: 200502
  5. METOPROLOL. [Concomitant]
     Active Substance: METOPROLOL
     Indication: HYPERTENSION
     Dosage: 47.5 MG, QD
     Route: 065
     Dates: start: 201001, end: 20150211
  6. NEORECORMON [Concomitant]
     Active Substance: ERYTHROPOIETIN
     Indication: ANAEMIA
     Dosage: 30000 IU, QW
     Route: 065
     Dates: start: 20100503, end: 20121002
  7. NACL [Concomitant]
     Active Substance: SODIUM CHLORIDE
     Indication: PRODUCT USED FOR UNKNOWN INDICATION
     Dosage: 2000 ML, UNK
     Route: 065
     Dates: start: 20131009, end: 20131010
  8. FOLIC ACID. [Concomitant]
     Active Substance: FOLIC ACID
     Indication: ANAEMIA
     Dosage: 5 MG, QD
     Route: 065
     Dates: start: 20141127
  9. RESONIUM [Concomitant]
     Active Substance: SODIUM POLYSTYRENE SULFONATE
     Indication: HYPERKALAEMIA
     Dosage: UNK
     Route: 065
     Dates: start: 20150513, end: 20150526
  10. PANTOPRAZOLE [Concomitant]
     Active Substance: PANTOPRAZOLE
     Indication: PRODUCT USED FOR UNKNOWN INDICATION
     Route: 065
  11. HYDROCHLOROTHIAZIDE. [Suspect]
     Active Substance: HYDROCHLOROTHIAZIDE
     Indication: PRODUCT USED FOR UNKNOWN INDICATION
     Dosage: 25 MG, QD
     Route: 065
     Dates: start: 201106, end: 201301
  12. HYDROCHLOROTHIAZIDE. [Suspect]
     Active Substance: HYDROCHLOROTHIAZIDE
     Dosage: 12.5 MG, UNK
     Route: 065
     Dates: start: 20131012
  13. METOPROLOL. [Concomitant]
     Active Substance: METOPROLOL
     Dosage: 142.5 MG, UNK
     Route: 065
     Dates: start: 20150212
  14. REVATIO [Concomitant]
     Active Substance: SILDENAFIL CITRATE
     Dosage: 80 MG, QD
     Route: 065
     Dates: start: 201403
  15. MAGNESIOCARD [Concomitant]
     Active Substance: MAGNESIUM ASPARTATE HYDROCHLORIDE
     Indication: MUSCLE SPASMS
     Dosage: 2.5 MMOL, QD
     Route: 065
     Dates: start: 20130703
  16. DERMATOP [Concomitant]
     Active Substance: PREDNICARBATE
     Indication: DERMATOSIS
     Dosage: UNK UNK, QD (1 TO 2 TIMES PER DAY)
     Route: 065
     Dates: start: 20151014
  17. INCB018424 [Suspect]
     Active Substance: RUXOLITINIB
     Dosage: 10 MG/DAY/TWICE
     Route: 048
     Dates: start: 20130328, end: 20131009
  18. INCB018424 [Suspect]
     Active Substance: RUXOLITINIB
     Dosage: 10 MG/DAY/TWICE
     Route: 048
     Dates: start: 20131013, end: 20140214
  19. INCB018424 [Suspect]
     Active Substance: RUXOLITINIB
     Dosage: UNK UNK, QD
     Route: 048
     Dates: start: 20140308, end: 20140404
  20. PANTOZOL [Concomitant]
     Active Substance: PANTOPRAZOLE SODIUM
     Dosage: 40 MG, QD
     Route: 065
     Dates: start: 20131013
  21. ALLOPURINOL. [Concomitant]
     Active Substance: ALLOPURINOL
     Indication: ARTHRITIS
     Dosage: 150 MG, QD
     Route: 065
     Dates: start: 199301
  22. REVATIO [Concomitant]
     Active Substance: SILDENAFIL CITRATE
     Indication: HYPERTENSION
     Dosage: 80 MG, QD
     Route: 065
     Dates: start: 200901
  23. MIRTAZAPINE. [Concomitant]
     Active Substance: MIRTAZAPINE
     Indication: RESTLESSNESS
     Dosage: 15 MG, PRN (AS NEEDED)
     Route: 065
     Dates: start: 200502, end: 20150212
  24. CLOBEGALEN [Concomitant]
     Indication: RASH
     Dosage: UNK UNK, QD (1 TO 2 TIMES PER DAY)
     Route: 065
     Dates: start: 20150903
  25. INCB018424 [Suspect]
     Active Substance: RUXOLITINIB
     Indication: MYELOFIBROSIS
     Dosage: 30 MG/DAY/TWICE
     Route: 048
     Dates: start: 20121004, end: 20121022
  26. INCB018424 [Suspect]
     Active Substance: RUXOLITINIB
     Dosage: 10 MG/DAY/TWICE
     Route: 048
     Dates: start: 20121023, end: 20121113
  27. TORASEMIDE [Concomitant]
     Active Substance: TORSEMIDE
     Dosage: 5 MG, UNK
     Route: 065
     Dates: start: 20130510, end: 20131008
  28. INCB018424 [Suspect]
     Active Substance: RUXOLITINIB
     Dosage: 30 MG/DAY/TWICE
     Route: 048
     Dates: start: 20130313, end: 20130327
  29. PANTOZOL [Concomitant]
     Active Substance: PANTOPRAZOLE SODIUM
     Indication: PRODUCT USED FOR UNKNOWN INDICATION
     Dosage: 80 MG, QD
     Route: 065
     Dates: start: 201001, end: 20131012
  30. CEFAZOLIN [Concomitant]
     Active Substance: CEFAZOLIN
     Indication: PRODUCT USED FOR UNKNOWN INDICATION
     Route: 065
  31. INCB018424 [Suspect]
     Active Substance: RUXOLITINIB
     Dosage: 20 MG, QD
     Route: 048
     Dates: start: 20121113, end: 20121206
  32. INCB018424 [Suspect]
     Active Substance: RUXOLITINIB
     Dosage: 10 MG/DAY/TWICE
     Route: 048
     Dates: start: 20121207, end: 20130313
  33. RAMIPRIL. [Concomitant]
     Active Substance: RAMIPRIL
     Indication: PRODUCT USED FOR UNKNOWN INDICATION
     Dosage: 7.5 MG, QD
     Route: 065
     Dates: start: 200901
  34. TORASEMIDE [Concomitant]
     Active Substance: TORSEMIDE
     Indication: HYPERTENSION
     Dosage: 10 MG, QD
     Route: 065
     Dates: start: 200901, end: 20130509
  35. INCB018424 [Suspect]
     Active Substance: RUXOLITINIB
     Dosage: 5 MG, QD
     Route: 048
     Dates: start: 20140424, end: 20141126
  36. INCB018424 [Suspect]
     Active Substance: RUXOLITINIB
     Dosage: 5 MG/DAY/TWICE
     Route: 048
     Dates: start: 20150128
  37. NEORECORMON [Concomitant]
     Active Substance: ERYTHROPOIETIN
     Dosage: 30000 IU, QW
     Route: 065
     Dates: start: 20121023
  38. GLUCOSE [Concomitant]
     Active Substance: DEXTROSE
     Indication: PRODUCT USED FOR UNKNOWN INDICATION
     Dosage: 500 ML, UNK
     Route: 065
     Dates: start: 20131009, end: 20131010
  39. IMODIUM [Concomitant]
     Active Substance: LOPERAMIDE HYDROCHLORIDE
     Indication: DIARRHOEA
     Dosage: 2 MG, QID (AS NEEDED)
     Route: 065
     Dates: start: 20141009

REACTIONS (15)
  - Anaemia [Recovering/Resolving]
  - Rectal haemorrhage [Recovered/Resolved]
  - Thrombocytopenia [Recovered/Resolved]
  - Haemoglobin decreased [Recovered/Resolved]
  - Haemoglobin decreased [Not Recovered/Not Resolved]
  - Splenomegaly [Unknown]
  - Anaemia [Not Recovered/Not Resolved]
  - Thrombocytopenia [Recovered/Resolved]
  - Thrombocytopenia [Not Recovered/Not Resolved]
  - Anaemia [Recovered/Resolved]
  - Anaemia [Recovered/Resolved]
  - Iron overload [Not Recovered/Not Resolved]
  - Thrombocytopenia [Recovered/Resolved]
  - Dyspnoea exertional [Not Recovered/Not Resolved]
  - Leukopenia [Not Recovered/Not Resolved]

NARRATIVE: CASE EVENT DATE: 20121018
